FAERS Safety Report 11076077 (Version 2)
Quarter: 2015Q2

REPORT INFORMATION
  Report Type: Spontaneous
  Country: US (occurrence: US)
  Receive Date: 20150429
  Receipt Date: 20150601
  Transmission Date: 20150821
  Serious: No
  Sender: FDA-Public Use
  Company Number: US-PFIZER INC-2015140064

PATIENT
  Age: 75 Year
  Sex: Female
  Weight: 79 kg

DRUGS (9)
  1. ADVIL [Suspect]
     Active Substance: IBUPROFEN
     Indication: PAIN
     Dosage: 200 MG, EVERY DAY
  2. COD LIVER OIL [Concomitant]
     Active Substance: COD LIVER OIL
     Dosage: 1 DF, DAILY
     Route: 048
  3. BABY ASPIRIN [Concomitant]
     Active Substance: ASPIRIN
     Indication: CARDIOVASCULAR EVENT PROPHYLAXIS
     Dosage: 81 MG, DAILY
     Route: 048
     Dates: start: 2010
  4. VITAMIN B COMPLEX [Concomitant]
     Active Substance: CYANOCOBALAMIN\DEXPANTHENOL\NIACINAMIDE\PYRIDOXINE HYDROCHLORIDE\RIBOFLAVIN 5^-PHOSPHATE SODIUM\THIAMINE HYDROCHLORIDE\VITAMIN B COMPLEX
     Dosage: 100 MG, DAILY
     Route: 048
  5. EVENING PRIMROSE OIL [Concomitant]
     Active Substance: EVENING PRIMROSE OIL
     Dosage: 500 MG, DAILY
     Route: 048
  6. CALCIUM WITH VITAMIN D /01204201/ [Concomitant]
     Dosage: 600 MG, 2X/DAY
     Route: 048
  7. ADVIL [Suspect]
     Active Substance: IBUPROFEN
     Indication: INSOMNIA
  8. BLACK COHOSH /01456801/ [Concomitant]
     Dosage: 540 MG, DAILY
     Route: 048
  9. SIMVASTATIN. [Concomitant]
     Active Substance: SIMVASTATIN
     Indication: BLOOD CHOLESTEROL INCREASED
     Dosage: 40 MG, 1X/DAY
     Route: 048
     Dates: start: 1990

REACTIONS (2)
  - Intentional product misuse [Unknown]
  - Urinary tract infection [Not Recovered/Not Resolved]
